FAERS Safety Report 4839315-1 (Version None)
Quarter: 2005Q4

REPORT INFORMATION
  Report Type: 
  Country: None (occurrence: None)
  Receive Date: 20051129
  Receipt Date: 20041228
  Transmission Date: 20060501
  Serious: No
  Sender: FDA-Public Use
  Company Number: US-GLAXOSMITHKLINE-A0538572A

PATIENT
  Age: 57 Year
  Sex: Male

DRUGS (9)
  1. WELLBUTRIN SR [Suspect]
     Indication: DEPRESSION
     Dosage: 150MG IN THE MORNING
     Route: 048
  2. LEXAPRO [Concomitant]
  3. ZOCOR [Concomitant]
  4. ATIVAN [Concomitant]
  5. AVAPRO [Concomitant]
  6. NEURONTIN [Concomitant]
  7. LEXAPRO [Concomitant]
  8. DESYREL [Concomitant]
  9. ASPIRIN [Concomitant]

REACTIONS (1)
  - ERECTILE DYSFUNCTION [None]
